FAERS Safety Report 4305515-2 (Version None)
Quarter: 2004Q1

REPORT INFORMATION
  Report Type: 
  Country: None (occurrence: None)
  Receive Date: 20040226
  Receipt Date: 20031111
  Transmission Date: 20041129
  Serious: No
  Sender: FDA-Public Use
  Company Number: US-BRISTOL-MYERS SQUIBB COMPANY-12433223

PATIENT
  Age: 41 Year
  Sex: Male
  Weight: 122 kg

DRUGS (6)
  1. ABILIFY [Suspect]
     Indication: BIPOLAR DISORDER
     Route: 048
     Dates: start: 20031105
  2. REMERON [Concomitant]
  3. EFFEXOR [Concomitant]
  4. NEUROTON [Concomitant]
  5. LAMICTAL [Concomitant]
  6. LITHIUM CARBONATE [Concomitant]

REACTIONS (3)
  - APATHY [None]
  - DEPRESSED MOOD [None]
  - HEADACHE [None]
